FAERS Safety Report 4290399-1 (Version None)
Quarter: 2004Q1

REPORT INFORMATION
  Report Type: 
  Country: None (occurrence: None)
  Receive Date: 20040126
  Receipt Date: 20031014
  Transmission Date: 20041129
  Serious: No
  Sender: FDA-Public Use
  Company Number: USA030948198

PATIENT
  Age: 58 Year
  Sex: Female
  Weight: 70 kg

DRUGS (13)
  1. FORTEO [Suspect]
     Dates: start: 20030601, end: 20031010
  2. MAGNESIUM [Concomitant]
  3. AMBIEN [Concomitant]
  4. VIVELLE [Concomitant]
  5. PROGESTERONE [Concomitant]
  6. FLEXERIL [Concomitant]
  7. FOLIC ACID [Concomitant]
  8. PENTASA [Concomitant]
  9. MAGNESIUM [Concomitant]
  10. LIPITOR [Concomitant]
     Indication: BLOOD CHOLESTEROL
  11. VITAMIN E [Concomitant]
  12. CALCIUM [Concomitant]
  13. SYNTHROID [Concomitant]

REACTIONS (7)
  - ARTHRALGIA [None]
  - BLOOD MAGNESIUM DECREASED [None]
  - DIFFICULTY IN WALKING [None]
  - FATIGUE [None]
  - MUSCLE CRAMP [None]
  - RED BLOOD CELL SEDIMENTATION RATE DECREASED [None]
  - WHITE BLOOD CELL COUNT DECREASED [None]
